FAERS Safety Report 5443092-3 (Version None)
Quarter: 2007Q3

REPORT INFORMATION
  Report Type: 
  Country: None (occurrence: None)
  Receive Date: 20070905
  Receipt Date: 20070823
  Transmission Date: 20080115
  Serious: Yes (Hospitalization)
  Sender: FDA-Public Use
  Company Number: US-KINGPHARMUSA00001-K200700906

PATIENT

DRUGS (7)
  1. SONATA [Suspect]
     Dosage: 200 MG, 20 CAPSULES SINGLE
     Route: 048
     Dates: start: 20070715, end: 20070715
  2. BUSPIRONE [Suspect]
     Dosage: 10 MG,  2 TABLET SINGLE
     Route: 048
     Dates: start: 20070715, end: 20070715
  3. DIAZEPAM [Suspect]
     Dosage: 30 MG, 3 TABLET SINGLE
     Route: 048
     Dates: start: 20070715, end: 20070715
  4. HALCION [Suspect]
     Dosage: 3.5 MG, 14 TABLET SINGLE
     Route: 048
     Dates: start: 20070715, end: 20070715
  5. LORAZEPAM [Suspect]
     Dosage: 5 MG, 5 TABLET SINGLE
     Route: 048
     Dates: start: 20070715, end: 20070715
  6. ZOLPIDEM TARTRATE [Suspect]
     Dosage: 50 MG, 5 TABLET SINGLE
     Route: 048
     Dates: start: 20070715, end: 20070715
  7. ZOPICLONE [Suspect]
     Dosage: 7.5 MG, 1 TABLET SINGLE
     Route: 048
     Dates: start: 20070715, end: 20070715

REACTIONS (4)
  - MULTIPLE DRUG OVERDOSE INTENTIONAL [None]
  - SOMNOLENCE [None]
  - SUICIDE ATTEMPT [None]
  - TONGUE DISCOLOURATION [None]
